FAERS Safety Report 5005385-3 (Version None)
Quarter: 2006Q2

REPORT INFORMATION
  Report Type: 
  Country: None (occurrence: None)
  Receive Date: 20060518
  Receipt Date: 20050810
  Transmission Date: 20061013
  Serious: Yes (Hospitalization, Disabling)
  Sender: FDA-Public Use
  Company Number: US-MERCK-0508USA02078

PATIENT
  Age: 54 Year
  Sex: Male
  Weight: 116 kg

DRUGS (6)
  1. VIOXX [Suspect]
     Indication: BACK PAIN
     Route: 048
     Dates: start: 20021001, end: 20021201
  2. VIOXX [Suspect]
     Route: 048
     Dates: start: 20030805, end: 20031028
  3. VIOXX [Suspect]
     Route: 048
  4. ASPIRIN [Concomitant]
     Route: 065
  5. HYDROCODONE HYDROCHLORIDE [Concomitant]
     Route: 065
  6. ACETAMINOPHEN [Concomitant]
     Route: 065

REACTIONS (9)
  - BACK DISORDER [None]
  - BLINDNESS [None]
  - BLOOD CHOLESTEROL INCREASED [None]
  - CAROTID ARTERY OCCLUSION [None]
  - DEPRESSION [None]
  - HYPERTENSION [None]
  - MYOCARDIAL INFARCTION [None]
  - OCULAR VASCULAR DISORDER [None]
  - POST-TRAUMATIC STRESS DISORDER [None]
